FAERS Safety Report 9633912 (Version 4)
Quarter: 2013Q4

REPORT INFORMATION
  Report Type: Report from Study
  Country: GB (occurrence: DK)
  Receive Date: 20131021
  Receipt Date: 20131101
  Transmission Date: 20140711
  Serious: Yes (Hospitalization, Other)
  Sender: FDA-Public Use
  Company Number: GB-JNJFOC-20130708311

PATIENT
  Age: 74 Year
  Sex: Male
  Weight: 93.5 kg

DRUGS (17)
  1. XARELTO [Suspect]
     Indication: ATRIAL FIBRILLATION
     Route: 048
     Dates: start: 20130222, end: 20130728
  2. XARELTO [Suspect]
     Indication: CEREBROVASCULAR ACCIDENT PROPHYLAXIS
     Route: 048
     Dates: start: 20130222, end: 20130728
  3. ASPIRIN [Concomitant]
     Indication: PRODUCT USED FOR UNKNOWN INDICATION
     Route: 065
     Dates: start: 20120606
  4. ZARATOR [Concomitant]
     Route: 065
     Dates: start: 20120504, end: 20130228
  5. CARVEDILOL [Concomitant]
     Route: 065
     Dates: start: 20120706
  6. NOVONORM [Concomitant]
     Route: 065
     Dates: start: 20120715, end: 20130701
  7. RISPERIDONE [Concomitant]
     Route: 065
     Dates: start: 20120814
  8. DIGOXIN [Concomitant]
     Route: 065
     Dates: start: 20120814
  9. IMACILLIN [Concomitant]
     Route: 065
     Dates: start: 20121025
  10. FURIX [Concomitant]
     Route: 065
     Dates: start: 20130201
  11. KALEORID [Concomitant]
     Route: 065
     Dates: start: 20130201
  12. CORODIL [Concomitant]
     Route: 065
     Dates: start: 20120620
  13. PANTOPRAZOLE [Concomitant]
     Route: 065
     Dates: start: 20130618
  14. INSULATARD HM [Concomitant]
     Route: 065
     Dates: start: 20130626
  15. PHENERGAN [Concomitant]
     Route: 065
     Dates: start: 20130623
  16. CALCIUM W/VITAMIN D NOS [Concomitant]
     Route: 065
     Dates: start: 20120528
  17. MAREVAN [Concomitant]
     Route: 065
     Dates: start: 20130725

REACTIONS (3)
  - Asthenia [Recovering/Resolving]
  - Myocardial infarction [Recovered/Resolved]
  - Duodenal ulcer haemorrhage [Recovered/Resolved]
